FAERS Safety Report 23104045 (Version 1)
Quarter: 2023Q4

REPORT INFORMATION
  Report Type: Spontaneous
  Country: US (occurrence: None)
  Receive Date: 20231022
  Receipt Date: 20231022
  Transmission Date: 20240110
  Serious: Yes (Hospitalization)
  Sender: FDA-Public Use
  Company Number: None

PATIENT
  Age: 72 Year
  Sex: Female

DRUGS (1)
  1. ZOLEDRONIC ACID [Suspect]
     Active Substance: ZOLEDRONIC ACID
     Dosage: FREQUENCY : ONCE;?
     Route: 042
     Dates: start: 20220721

REACTIONS (2)
  - Arthralgia [None]
  - Oedema [None]

NARRATIVE: CASE EVENT DATE: 20220725
